FAERS Safety Report 20858726 (Version 1)
Quarter: 2022Q2

REPORT INFORMATION
  Report Type: Spontaneous
  Country: US (occurrence: US)
  Receive Date: 20220522
  Receipt Date: 20220522
  Transmission Date: 20220721
  Serious: No
  Sender: FDA-Public Use
  Company Number: US-JNJFOC-20220543684

PATIENT
  Age: 53 Year
  Sex: Female
  Weight: 97.5 kg

DRUGS (2)
  1. OPSUMIT [Suspect]
     Active Substance: MACITENTAN
     Indication: Product used for unknown indication
     Route: 048
  2. TYVASO [Suspect]
     Active Substance: TREPROSTINIL
     Indication: Pulmonary arterial hypertension
     Dosage: 18-72 G (3-12 BREATHS), FOUR TIMES A DAY (QID) VIA INHALATION (IH) ROUTE. ON
     Route: 055
     Dates: start: 20210831

REACTIONS (2)
  - Dyspnoea [Unknown]
  - Product dose omission issue [Unknown]
